FAERS Safety Report 6181395-8 (Version None)
Quarter: 2009Q2

REPORT INFORMATION
  Report Type: 
  Country: None (occurrence: None)
  Receive Date: 20090501
  Receipt Date: 20090331
  Transmission Date: 20091009
  Serious: No
  Sender: FDA-Public Use
  Company Number: 2009002795

PATIENT
  Sex: Female

DRUGS (2)
  1. TREANDA [Suspect]
     Indication: CHRONIC LYMPHOCYTIC LEUKAEMIA
     Dosage: 195 MG (195 MG, 1 IN 1 D) , INTRAVENOUS : INTRAVENOUS
     Route: 042
     Dates: start: 20090224, end: 20090225
  2. TREANDA [Suspect]
     Indication: CHRONIC LYMPHOCYTIC LEUKAEMIA
     Dosage: 195 MG (195 MG, 1 IN 1 D) , INTRAVENOUS : INTRAVENOUS
     Route: 042
     Dates: start: 20090301

REACTIONS (1)
  - LYMPHADENOPATHY [None]
